FAERS Safety Report 25177096 (Version 2)
Quarter: 2025Q2

REPORT INFORMATION
  Report Type: Spontaneous
  Country: US (occurrence: US)
  Receive Date: 20250409
  Receipt Date: 20250623
  Transmission Date: 20250716
  Serious: Yes (Hospitalization, Other)
  Sender: GRAVITI PHARMACEUTICALS PRIVATE LIMITED
  Company Number: US-GRAVITIPHARMA-GRA-2503-US-LIT-0210

PATIENT
  Age: 32 Year
  Sex: Female

DRUGS (2)
  1. BUPROPION HYDROCHLORIDE [Suspect]
     Active Substance: BUPROPION HYDROCHLORIDE
     Indication: Depression
     Route: 048
  2. PROPRANOLOL [Suspect]
     Active Substance: PROPRANOLOL HYDROCHLORIDE
     Indication: Anxiety
     Route: 048

REACTIONS (7)
  - Cardiogenic shock [Unknown]
  - Ventricular tachycardia [Recovering/Resolving]
  - Cardiac arrest [Unknown]
  - Respiratory failure [Recovering/Resolving]
  - Unresponsive to stimuli [Unknown]
  - Toxicity to various agents [Unknown]
  - Intentional overdose [Unknown]
